FAERS Safety Report 7433716-3 (Version None)
Quarter: 2011Q2

REPORT INFORMATION
  Report Type: 
  Country: None (occurrence: None)
  Receive Date: 20110423
  Receipt Date: 20110414
  Transmission Date: 20111010
  Serious: Yes (Hospitalization)
  Sender: FDA-Public Use
  Company Number: US-AMGEN-USASP2011020018

PATIENT

DRUGS (2)
  1. ARANESP [Suspect]
     Indication: ANAEMIA
  2. EPOGEN [Suspect]
     Indication: ANAEMIA

REACTIONS (1)
  - HOSPITALISATION [None]
